FAERS Safety Report 21037634 (Version 2)
Quarter: 2022Q3

REPORT INFORMATION
  Report Type: Spontaneous
  Country: BR (occurrence: BR)
  Receive Date: 20220704
  Receipt Date: 20220906
  Transmission Date: 20221027
  Serious: Yes (Life-Threatening, Hospitalization, Other)
  Sender: FDA-Public Use
  Company Number: BR-BRISTOL-MYERS SQUIBB COMPANY-2022-064092

PATIENT
  Age: 48 Year
  Sex: Male

DRUGS (2)
  1. REVLIMID [Suspect]
     Active Substance: LENALIDOMIDE
     Indication: Plasma cell myeloma refractory
     Route: 065
     Dates: start: 201812
  2. REVLIMID [Suspect]
     Active Substance: LENALIDOMIDE
     Dosage: D1-D21
     Route: 065

REACTIONS (2)
  - Pulmonary sepsis [Recovering/Resolving]
  - Acute kidney injury [Recovering/Resolving]
